FAERS Safety Report 24758543 (Version 1)
Quarter: 2024Q4

REPORT INFORMATION
  Report Type: Spontaneous
  Country: TW (occurrence: TW)
  Receive Date: 20241220
  Receipt Date: 20241220
  Transmission Date: 20250115
  Serious: Yes (Other)
  Sender: ROCHE
  Company Number: TW-ROCHE-10000158161

PATIENT
  Age: 55 Year
  Sex: Female

DRUGS (26)
  1. RITUXIMAB [Suspect]
     Active Substance: RITUXIMAB
     Indication: Diffuse large B-cell lymphoma
     Dosage: R-CHOP, UNKNOWN DOSE
     Route: 065
     Dates: start: 20171206, end: 20180425
  2. RITUXIMAB [Suspect]
     Active Substance: RITUXIMAB
     Dosage: R-ESHAP, UNKNOWN DOSE
     Route: 065
     Dates: start: 20180707, end: 20181021
  3. RITUXIMAB [Suspect]
     Active Substance: RITUXIMAB
     Dosage: R-BOMES, UNKNOWN DOSE
     Route: 065
     Dates: start: 20181116
  4. RITUXIMAB [Suspect]
     Active Substance: RITUXIMAB
     Dosage: POLA-RB, UNKNOWN DOSE
     Route: 065
     Dates: start: 20181222, end: 20190105
  5. RITUXIMAB [Suspect]
     Active Substance: RITUXIMAB
     Dosage: POV-R-BENEAM, UNKNOWN DOSE
     Route: 065
     Dates: start: 20190130
  6. RITUXIMAB [Suspect]
     Active Substance: RITUXIMAB
     Dosage: R-GEMOX, UNKNOWN DOSE
     Route: 065
     Dates: start: 20210319, end: 20210407
  7. POLATUZUMAB VEDOTIN [Suspect]
     Active Substance: POLATUZUMAB VEDOTIN
     Indication: Diffuse large B-cell lymphoma
     Dosage: POV-R-BENEAM, UNKNOWN DOSE
     Route: 065
     Dates: start: 20190130
  8. POLATUZUMAB VEDOTIN [Suspect]
     Active Substance: POLATUZUMAB VEDOTIN
     Dosage: POLA-RB, UNKNOWN DOSE
     Route: 065
     Dates: start: 20181222, end: 20190105
  9. METHOTREXATE [Suspect]
     Active Substance: METHOTREXATE
     Indication: Diffuse large B-cell lymphoma
     Dosage: R-BOMES, UNKNOWN DOSE
     Route: 065
     Dates: start: 20181116
  10. BENDAMUSTINE [Suspect]
     Active Substance: BENDAMUSTINE
     Indication: Diffuse large B-cell lymphoma
     Dosage: POV-R-BENEAM, UNKNOWN DOSE
     Route: 065
     Dates: start: 20190130
  11. BENDAMUSTINE [Suspect]
     Active Substance: BENDAMUSTINE
     Dosage: POLA-RB, UNKNOWN DOSE
     Route: 065
     Dates: start: 20181222, end: 20190105
  12. VINCRISTINE [Suspect]
     Active Substance: VINCRISTINE
     Indication: Diffuse large B-cell lymphoma
     Dosage: R-BOMES, UNKNOWN DOSE
     Route: 065
     Dates: start: 20181116
  13. VINCRISTINE [Suspect]
     Active Substance: VINCRISTINE
     Dosage: R-CHOP, UNKNOWN DOSE
     Route: 065
     Dates: start: 20171206, end: 20180425
  14. CYCLOPHOSPHAMIDE [Suspect]
     Active Substance: CYCLOPHOSPHAMIDE
     Indication: Diffuse large B-cell lymphoma
     Dosage: R-CHOP, UNKNOWN DOSE
     Route: 065
     Dates: start: 20171206, end: 20180425
  15. DOXORUBICIN HYDROCHLORIDE [Suspect]
     Active Substance: DOXORUBICIN HYDROCHLORIDE
     Indication: Diffuse large B-cell lymphoma
     Dosage: R-CHOP, UNKNOWN DOSE
     Route: 065
     Dates: start: 20171206, end: 20180425
  16. CISPLATIN [Suspect]
     Active Substance: CISPLATIN
     Indication: Diffuse large B-cell lymphoma
     Dosage: R-ESHAP, UNKNOWN DOSE
     Route: 065
     Dates: start: 20180707, end: 20181021
  17. PREDNISONE [Suspect]
     Active Substance: PREDNISONE
     Indication: Diffuse large B-cell lymphoma
     Dosage: R-CHOP, UNKNOWN DOSE
     Route: 065
     Dates: start: 20171206, end: 20180425
  18. ETOPOSIDE [Suspect]
     Active Substance: ETOPOSIDE
     Indication: Diffuse large B-cell lymphoma
     Dosage: R-BOMES, UNKNOWN DOSE
     Route: 065
     Dates: start: 20181116
  19. ETOPOSIDE [Suspect]
     Active Substance: ETOPOSIDE
     Dosage: POV-R-BENEAM, UNKNOWN DOSE
     Route: 065
     Dates: start: 20190130
  20. ETOPOSIDE [Suspect]
     Active Substance: ETOPOSIDE
     Dosage: R-ESHAP, UNKNOWN DOSE
     Route: 065
     Dates: start: 20180707, end: 20181021
  21. METHYLPREDNISOLONE [Suspect]
     Active Substance: METHYLPREDNISOLONE
     Indication: Diffuse large B-cell lymphoma
     Dosage: R-ESHAP, UNKNOWN DOSE
     Route: 065
     Dates: start: 20180707, end: 20181021
  22. METHYLPREDNISOLONE [Suspect]
     Active Substance: METHYLPREDNISOLONE
     Dosage: R-BOMES, UNKNOWN DOSE
     Route: 065
     Dates: start: 20181116
  23. CYTARABINE [Suspect]
     Active Substance: CYTARABINE
     Indication: Diffuse large B-cell lymphoma
     Dosage: R-ESHAP, UNKNOWN DOSE
     Route: 065
     Dates: start: 20180707, end: 20181021
  24. CYTARABINE [Suspect]
     Active Substance: CYTARABINE
     Dosage: POV-R-BENEAM, UNKNOWN DOSE
     Route: 065
     Dates: start: 20190130
  25. CARMUSTINE [Suspect]
     Active Substance: CARMUSTINE
     Indication: Diffuse large B-cell lymphoma
     Dosage: R-BOMES, UNKNOWN DOSE
     Route: 065
     Dates: start: 20181116
  26. MELPHALAN [Suspect]
     Active Substance: MELPHALAN
     Indication: Diffuse large B-cell lymphoma
     Dosage: POV-R-BENEAM, UNKNOWN DOSE
     Route: 065
     Dates: start: 20190130

REACTIONS (2)
  - Disease progression [Unknown]
  - Lymphoma [Unknown]

NARRATIVE: CASE EVENT DATE: 20210301
